FAERS Safety Report 12695518 (Version 1)
Quarter: 2016Q3

REPORT INFORMATION
  Report Type: Report from Study
  Country: AU (occurrence: AU)
  Receive Date: 20160829
  Receipt Date: 20160829
  Transmission Date: 20161109
  Serious: Yes (Life-Threatening, Hospitalization)
  Sender: FDA-Public Use
  Company Number: AU-PFIZER INC-2011042121

PATIENT
  Age: 70 Year
  Sex: Male
  Weight: 75 kg

DRUGS (12)
  1. NEXIUM [Concomitant]
     Active Substance: ESOMEPRAZOLE MAGNESIUM
     Indication: PROPHYLAXIS AGAINST GASTROINTESTINAL ULCER
     Dosage: 20 MG, 1X/DAY
     Route: 048
     Dates: start: 20090226, end: 20101202
  2. SYMBICORT [Concomitant]
     Active Substance: BUDESONIDE\FORMOTEROL FUMARATE DIHYDRATE
     Dosage: UNK
     Route: 048
     Dates: start: 2006
  3. SPIRIVA [Concomitant]
     Active Substance: TIOTROPIUM BROMIDE MONOHYDRATE
     Dosage: UNK
     Route: 048
     Dates: start: 2006
  4. PANADOL [Concomitant]
     Active Substance: ACETAMINOPHEN
     Dosage: UNK
     Route: 048
     Dates: start: 2006
  5. ARISTOCORT [Concomitant]
     Active Substance: TRIAMCINOLONE DIACETATE
     Dosage: UNK
     Route: 061
     Dates: start: 2005
  6. COD-LIVER OIL [Concomitant]
     Active Substance: FISH OIL
     Dosage: UNK
     Route: 048
     Dates: start: 2004
  7. IBUPROFEN. [Suspect]
     Active Substance: IBUPROFEN
     Indication: OSTEOARTHRITIS
     Dosage: UNK
     Route: 048
     Dates: start: 20090226, end: 20101202
  8. LIPITOR [Concomitant]
     Active Substance: ATORVASTATIN CALCIUM
     Dosage: UNK
     Route: 048
     Dates: start: 2005
  9. ACETYLSALICYLIC ACID [Concomitant]
     Active Substance: ASPIRIN
     Dosage: UNK
     Route: 048
     Dates: start: 2006
  10. IBUPROFEN. [Suspect]
     Active Substance: IBUPROFEN
     Indication: RHEUMATOID ARTHRITIS
  11. COVERSYL [Concomitant]
     Active Substance: PERINDOPRIL
     Dosage: UNK
     Route: 048
     Dates: start: 2006
  12. FLUOXETINE [Concomitant]
     Active Substance: FLUOXETINE HYDROCHLORIDE
     Dosage: UNK
     Route: 048
     Dates: start: 20090617

REACTIONS (2)
  - Osteoarthritis [Recovered/Resolved]
  - Myocardial infarction [Recovered/Resolved]

NARRATIVE: CASE EVENT DATE: 20100303
